FAERS Safety Report 8890395 (Version 1)
Quarter: 2012Q4

REPORT INFORMATION
  Report Type: 
  Country: US (occurrence: US)
  Receive Date: 20121107
  Receipt Date: 20121107
  Transmission Date: 20130627
  Serious: No
  Sender: FDA-Public Use
  Company Number: US-009507513-1210USA012910

PATIENT
  Sex: Male

DRUGS (1)
  1. CLARINEX-D [Suspect]
     Indication: HYPERSENSITIVITY
     Dosage: 1 DF, qd
     Route: 048
     Dates: start: 201205

REACTIONS (3)
  - Drug effect decreased [Unknown]
  - Therapeutic response delayed [Unknown]
  - Incorrect dose administered [Unknown]
